FAERS Safety Report 5152513-5 (Version None)
Quarter: 2006Q4

REPORT INFORMATION
  Report Type: 
  Country: None (occurrence: None)
  Receive Date: 20061116
  Receipt Date: 20061030
  Transmission Date: 20070319
  Serious: Yes (Other)
  Sender: FDA-Public Use
  Company Number: IT-ELI_LILLY_AND_COMPANY-IT200611000522

PATIENT
  Sex: Male

DRUGS (1)
  1. XIGRIS [Suspect]
     Dosage: UNK, UNK
     Dates: start: 20061028

REACTIONS (1)
  - THROMBOCYTOPENIA [None]
